FAERS Safety Report 7466416-4 (Version None)
Quarter: 2011Q2

REPORT INFORMATION
  Report Type: 
  Country: None (occurrence: None)
  Receive Date: 20110509
  Receipt Date: 20110503
  Transmission Date: 20111010
  Serious: No
  Sender: FDA-Public Use
  Company Number: US-PFIZER INC-2008029792

PATIENT
  Age: 49 Year
  Sex: Female
  Weight: 59.1 kg

DRUGS (3)
  1. REQUIP [Concomitant]
     Indication: RESTLESS LEGS SYNDROME
  2. IBANDRONATE SODIUM [Concomitant]
  3. CHANTIX [Suspect]
     Dates: start: 20070801, end: 20071001

REACTIONS (8)
  - UNEVALUABLE EVENT [None]
  - DYSGEUSIA [None]
  - ABNORMAL DREAMS [None]
  - CONSTIPATION [None]
  - ABDOMINAL DISTENSION [None]
  - DISCOMFORT [None]
  - BOWEL MOVEMENT IRREGULARITY [None]
  - NAUSEA [None]
